FAERS Safety Report 23404140 (Version 4)
Quarter: 2024Q3

REPORT INFORMATION
  Report Type: Other
  Country: HU (occurrence: HU)
  Receive Date: 20240116
  Receipt Date: 20240730
  Transmission Date: 20241016
  Serious: Yes (Other)
  Sender: ASTELLAS
  Company Number: HU-ASTELLAS-2023US035387

PATIENT
  Age: 26 Year
  Weight: 49 kg

DRUGS (7)
  1. CRESEMBA [Interacting]
     Active Substance: ISAVUCONAZONIUM SULFATE
     Indication: Aspergillus infection
     Route: 048
     Dates: start: 20230913, end: 20231019
  2. CRESEMBA [Interacting]
     Active Substance: ISAVUCONAZONIUM SULFATE
     Indication: Bronchitis fungal
  3. ELEXACAFTOR\IVACAFTOR\TEZACAFTOR [Interacting]
     Active Substance: ELEXACAFTOR\IVACAFTOR\TEZACAFTOR
     Indication: Cystic fibrosis
     Dosage: 2 DF, ONCE DAILY (2 TABLETS IN THE MORNING)
     Route: 065
     Dates: start: 20221201
  4. KALYDECO [Interacting]
     Active Substance: IVACAFTOR
     Indication: Cystic fibrosis
     Dosage: 1 DF, EVERY OTHER DAY (IN EVENING)
     Route: 065
  5. KALYDECO [Interacting]
     Active Substance: IVACAFTOR
     Dosage: 1 DF, OTHER (IN EVENING)
     Route: 065
  6. VORICONAZOLE [Suspect]
     Active Substance: VORICONAZOLE
     Indication: Aspergillus infection
     Route: 065
     Dates: start: 20220503, end: 20230801
  7. VORICONAZOLE [Suspect]
     Active Substance: VORICONAZOLE
     Indication: Bronchitis fungal

REACTIONS (3)
  - Liver injury [Unknown]
  - Transaminases increased [Unknown]
  - Drug interaction [Unknown]
